FAERS Safety Report 20616381 (Version 1)
Quarter: 2022Q1

REPORT INFORMATION
  Report Type: Spontaneous
  Country: US (occurrence: None)
  Receive Date: 20220321
  Receipt Date: 20220321
  Transmission Date: 20220423
  Serious: Yes (Hospitalization)
  Sender: FDA-Public Use
  Company Number: None

PATIENT
  Sex: Female

DRUGS (1)
  1. ZIEXTENZO [Suspect]
     Active Substance: PEGFILGRASTIM-BMEZ
     Indication: Agranulocytosis
     Dosage: 6MG/0.6ML;? INJECT 0.4 ML (4 MG) UNDER THE SKIN (SUBCUTANEOUS INJECTION) ONCE 24 TO 48 HOURS AFTER C
     Route: 058
     Dates: start: 20210828

REACTIONS (1)
  - Hospitalisation [None]
